FAERS Safety Report 18263392 (Version 1)
Quarter: 2020Q3

REPORT INFORMATION
  Report Type: Spontaneous
  Country: GB (occurrence: GB)
  Receive Date: 20200914
  Receipt Date: 20200914
  Transmission Date: 20201103
  Serious: Yes (Other)
  Sender: FDA-Public Use
  Company Number: NVSC2020GB245481

PATIENT
  Age: 36 Year
  Sex: Female
  Weight: 89 kg

DRUGS (14)
  1. METFORMIN [Suspect]
     Active Substance: METFORMIN HYDROCHLORIDE
     Indication: DIABETES MELLITUS
     Dosage: 500 MG, QD
     Route: 065
     Dates: start: 20200824
  2. DALTEPARIN [Suspect]
     Active Substance: DALTEPARIN
     Indication: PRODUCT USED FOR UNKNOWN INDICATION
     Dosage: 18000 IU, QD
     Route: 065
     Dates: start: 20200824
  3. ETOPOSIDE. [Suspect]
     Active Substance: ETOPOSIDE
     Indication: NEOPLASM RECURRENCE
     Dosage: 720 MG, QD
     Route: 042
     Dates: start: 20200824, end: 20200824
  4. APREPITANT. [Suspect]
     Active Substance: APREPITANT
     Dosage: 80 MG, UNKNOWN (D2)
     Route: 065
     Dates: start: 20200825
  5. ONDANSETRON [Suspect]
     Active Substance: ONDANSETRON
     Indication: SUPPORTIVE CARE
     Dosage: 16 MG, QD (BD FOR 3 DAYS)
     Route: 065
     Dates: start: 20200824, end: 20200826
  6. DEXAMETHASONE. [Suspect]
     Active Substance: DEXAMETHASONE
     Indication: SUPPORTIVE CARE
     Dosage: 8 MG, QD (BD FOR 3 DAYS)
     Route: 065
     Dates: start: 20200824, end: 20200826
  7. APREPITANT. [Suspect]
     Active Substance: APREPITANT
     Dosage: 80 MG, UNKNOWN (D3)
     Route: 065
     Dates: start: 20200826, end: 20200826
  8. DOMPERIDONE [Suspect]
     Active Substance: DOMPERIDONE
     Indication: SUPPORTIVE CARE
     Dosage: 30 MG, QD
     Route: 065
     Dates: start: 20200824
  9. CISPLATIN. [Suspect]
     Active Substance: CISPLATIN
     Indication: GERM CELL NEOPLASM
     Dosage: UNK (IN SODIUM CHLORIDE 0.9%)
     Route: 065
     Dates: start: 20200824, end: 20200824
  10. CISPLATIN. [Suspect]
     Active Substance: CISPLATIN
     Indication: NEOPLASM RECURRENCE
  11. SODIUM CHLORIDE. [Suspect]
     Active Substance: SODIUM CHLORIDE
     Indication: MEDICATION DILUTION
     Dosage: 2 DF, QD (IN ETOPOSIDE) (FORMULATION: INTRAVENOUS INFUSION BP)
     Route: 042
     Dates: start: 20200824, end: 20200824
  12. SODIUM CHLORIDE. [Suspect]
     Active Substance: SODIUM CHLORIDE
     Dosage: UNK (IN CISPLATIN)
     Route: 065
     Dates: start: 20200824, end: 20200824
  13. ETOPOSIDE. [Suspect]
     Active Substance: ETOPOSIDE
     Indication: GERM CELL NEOPLASM
  14. APREPITANT. [Suspect]
     Active Substance: APREPITANT
     Indication: SUPPORTIVE CARE
     Dosage: 125 UNK (D1)
     Route: 065
     Dates: start: 20200824

REACTIONS (1)
  - Anaphylactic reaction [Recovered/Resolved]

NARRATIVE: CASE EVENT DATE: 20200824
